FAERS Safety Report 12357073 (Version 1)
Quarter: 2016Q2

REPORT INFORMATION
  Report Type: Spontaneous
  Country: US (occurrence: US)
  Receive Date: 20160511
  Receipt Date: 20160511
  Transmission Date: 20160815
  Serious: No
  Sender: FDA-Public Use
  Company Number: US-BAYER-2016-089247

PATIENT
  Age: 73 Year
  Sex: Male
  Weight: 68.27 kg

DRUGS (2)
  1. MIRALAX [Suspect]
     Active Substance: POLYETHYLENE GLYCOL 3350
     Indication: CONSTIPATION
     Dosage: 0.25 DF, PRN
     Route: 048
  2. CLINDAMYCIN [Concomitant]
     Active Substance: CLINDAMYCIN\CLINDAMYCIN PHOSPHATE

REACTIONS (4)
  - Muscle spasms [None]
  - Product use issue [None]
  - Faeces hard [None]
  - Malaise [None]
